FAERS Safety Report 18029378 (Version 5)
Quarter: 2024Q1

REPORT INFORMATION
  Report Type: Spontaneous
  Country: US (occurrence: US)
  Receive Date: 20200716
  Receipt Date: 20240208
  Transmission Date: 20240410
  Serious: Yes (Hospitalization, Other)
  Sender: FDA-Public Use
  Company Number: US-GLENMARK PHARMACEUTICALS-2020GMK046500

PATIENT
  Age: 65 Year
  Sex: Male

DRUGS (9)
  1. LAMOTRIGINE [Interacting]
     Active Substance: LAMOTRIGINE
     Indication: Seizure
     Dosage: 150 MILLIGRAM, TWO TIMES A DAY
     Route: 065
  2. LAMOTRIGINE [Interacting]
     Active Substance: LAMOTRIGINE
     Dosage: 200 MILLIGRAM, TWO TIMES A DAY
     Route: 065
  3. LAMOTRIGINE [Interacting]
     Active Substance: LAMOTRIGINE
     Dosage: 75 MILLIGRAM, TWO TIMES A DAY
     Route: 065
  4. SERTRALINE [Interacting]
     Active Substance: SERTRALINE HYDROCHLORIDE
     Indication: Depression
     Dosage: 25 MILLIGRAM, ONCE A DAY
     Route: 065
  5. SERTRALINE [Interacting]
     Active Substance: SERTRALINE HYDROCHLORIDE
     Indication: Seizure
  6. WARFARIN SODIUM [Suspect]
     Active Substance: WARFARIN SODIUM
     Indication: Product used for unknown indication
     Dosage: UNK
     Route: 065
  7. VALPROIC ACID [Suspect]
     Active Substance: VALPROIC ACID
     Indication: Product used for unknown indication
     Dosage: 1500 MILLIGRAM, TWO TIMES A DAY
     Route: 065
  8. VALPROIC ACID [Suspect]
     Active Substance: VALPROIC ACID
     Dosage: 1000 MILLIGRAM, TWO TIMES A DAY
     Route: 065
  9. LORAZEPAM [Concomitant]
     Active Substance: LORAZEPAM
     Indication: Product used for unknown indication
     Dosage: UNK
     Route: 065

REACTIONS (7)
  - Delirium [Recovering/Resolving]
  - Mental status changes [Recovering/Resolving]
  - Drug interaction [Recovering/Resolving]
  - Anticoagulation drug level above therapeutic [Recovered/Resolved]
  - Toxicity to various agents [Recovering/Resolving]
  - Drug level increased [Recovering/Resolving]
  - Hypertransaminasaemia [Recovering/Resolving]
